FAERS Safety Report 23843180 (Version 1)
Quarter: 2024Q2

REPORT INFORMATION
  Report Type: Spontaneous
  Country: US (occurrence: None)
  Receive Date: 20240509
  Receipt Date: 20240509
  Transmission Date: 20240716
  Serious: Yes (Other)
  Sender: FDA-Public Use
  Company Number: None

PATIENT
  Age: 33 Year
  Sex: Female
  Weight: 60.3 kg

DRUGS (3)
  1. OFLOXACIN OTIC [Suspect]
     Active Substance: OFLOXACIN
     Indication: Ear infection
     Dosage: FREQUENCY : TWICE A DAY;?
     Route: 001
     Dates: start: 20240427, end: 20240503
  2. VITAMIN D [Concomitant]
     Active Substance: VITAMIN D NOS
  3. MAGNESIUM [Concomitant]
     Active Substance: MAGNESIUM

REACTIONS (12)
  - Pain in extremity [None]
  - Muscle spasms [None]
  - Muscle spasms [None]
  - Tinnitus [None]
  - Anosmia [None]
  - Headache [None]
  - Arthralgia [None]
  - Therapy cessation [None]
  - Arthralgia [None]
  - Arthralgia [None]
  - Fatigue [None]
  - Product complaint [None]

NARRATIVE: CASE EVENT DATE: 20240427
